FAERS Safety Report 26181015 (Version 1)
Quarter: 2025Q4

REPORT INFORMATION
  Report Type: Report from Study
  Country: US (occurrence: US)
  Receive Date: 20251221
  Receipt Date: 20251221
  Transmission Date: 20260118
  Serious: Yes (Hospitalization)
  Sender: EISAI
  Company Number: US-Eisai-EC-2025-202239

PATIENT
  Age: 56 Year
  Sex: Female

DRUGS (2)
  1. LENVIMA [Suspect]
     Active Substance: LENVATINIB
     Indication: Ovarian cancer
     Route: 048
     Dates: start: 202503, end: 20250321
  2. LENVIMA [Suspect]
     Active Substance: LENVATINIB
     Route: 048
     Dates: start: 2025, end: 202511

REACTIONS (6)
  - Palmar-plantar erythrodysaesthesia syndrome [Unknown]
  - Rash [Unknown]
  - Peripheral swelling [Unknown]
  - Wound [Unknown]
  - Stomatitis [Unknown]
  - Urticaria [Unknown]

NARRATIVE: CASE EVENT DATE: 20250101
